FAERS Safety Report 19501043 (Version 1)
Quarter: 2021Q3

REPORT INFORMATION
  Report Type: Spontaneous
  Country: US (occurrence: US)
  Receive Date: 20210706
  Receipt Date: 20210706
  Transmission Date: 20211014
  Serious: Yes (Hospitalization)
  Sender: FDA-Public Use
  Company Number: None

PATIENT
  Sex: Male

DRUGS (2)
  1. UBRELVY [Concomitant]
     Active Substance: UBROGEPANT
  2. BOTOX [Suspect]
     Active Substance: ONABOTULINUMTOXINA
     Indication: MIGRAINE WITHOUT AURA
     Dosage: EVERY 12 WEEKS
     Dates: start: 20201215

REACTIONS (2)
  - Therapy interrupted [None]
  - Headache [None]
